FAERS Safety Report 6672880-0 (Version None)
Quarter: 2010Q2

REPORT INFORMATION
  Report Type: 
  Country: None (occurrence: None)
  Receive Date: 20100408
  Receipt Date: 20100329
  Transmission Date: 20101027
  Serious: Yes (Hospitalization)
  Sender: FDA-Public Use
  Company Number: PHHY2010US14299

PATIENT
  Sex: Female

DRUGS (1)
  1. GLEEVEC [Suspect]
     Dosage: 400 MG DAILY
     Route: 048

REACTIONS (2)
  - GASTROINTESTINAL STROMAL TUMOUR [None]
  - INTESTINAL RESECTION [None]
